FAERS Safety Report 6445975-4 (Version None)
Quarter: 2009Q4

REPORT INFORMATION
  Report Type: 
  Country: None (occurrence: None)
  Receive Date: 20091119
  Receipt Date: 20090429
  Transmission Date: 20100525
  Serious: No
  Sender: FDA-Public Use
  Company Number: A0783050A

PATIENT
  Age: 41 Year
  Sex: Female

DRUGS (1)
  1. BUPROPION HCL [Suspect]
     Indication: SUICIDAL IDEATION
     Dosage: 150MG PER DAY
     Route: 048
     Dates: start: 20090412

REACTIONS (9)
  - DIZZINESS [None]
  - EAR PRURITUS [None]
  - EYE PRURITUS [None]
  - FEELING ABNORMAL [None]
  - INSOMNIA [None]
  - MULTIPLE ALLERGIES [None]
  - PRURITUS [None]
  - RASH [None]
  - URTICARIA [None]
